FAERS Safety Report 7126544-X (Version None)
Quarter: 2010Q4

REPORT INFORMATION
  Report Type: 
  Country: None (occurrence: None)
  Receive Date: 20101129
  Receipt Date: 20101108
  Transmission Date: 20110411
  Serious: Yes (Other)
  Sender: FDA-Public Use
  Company Number: DE-PFIZER INC-2010154462

PATIENT
  Sex: Female

DRUGS (1)
  1. DOLORMIN [Suspect]
     Indication: DYSMENORRHOEA
     Dosage: 400 MG, UNK
     Route: 048

REACTIONS (1)
  - INFERTILITY FEMALE [None]
